FAERS Safety Report 6800416-X (Version None)
Quarter: 2010Q2

REPORT INFORMATION
  Report Type: 
  Country: None (occurrence: None)
  Receive Date: 20100629
  Receipt Date: 20100621
  Transmission Date: 20101027
  Serious: Yes (Hospitalization)
  Sender: FDA-Public Use
  Company Number: US-BIOGENIDEC-2010BI019137

PATIENT
  Age: 29 Year
  Sex: Female
  Weight: 131 kg

DRUGS (8)
  1. TYSABRI [Suspect]
     Indication: MULTIPLE SCLEROSIS
     Route: 042
     Dates: start: 20080819, end: 20080819
  2. TYSABRI [Suspect]
     Route: 042
     Dates: start: 20081121, end: 20081121
  3. TYSABRI [Suspect]
     Route: 042
     Dates: start: 20090813, end: 20090813
  4. TYSABRI [Suspect]
     Route: 042
     Dates: start: 20091113, end: 20091113
  5. TYSABRI [Suspect]
     Route: 042
     Dates: start: 20100208
  6. COREG [Concomitant]
     Indication: HEART RATE INCREASED
  7. LEXAPRO [Concomitant]
     Indication: DEPRESSION
  8. MULTI-VITAMIN [Concomitant]
     Indication: DRUG USE FOR UNKNOWN INDICATION

REACTIONS (5)
  - ASTHENIA [None]
  - CLUMSINESS [None]
  - CONCENTRIC SCLEROSIS [None]
  - FUNGAL INFECTION [None]
  - STRESS [None]
